FAERS Safety Report 9540609 (Version 1)
Quarter: 2013Q3

REPORT INFORMATION
  Report Type: Spontaneous
  Country: US (occurrence: US)
  Receive Date: 20130920
  Receipt Date: 20130920
  Transmission Date: 20140515
  Serious: Yes (Other)
  Sender: FDA-Public Use
  Company Number: US-TEVA-433545USA

PATIENT
  Sex: Male

DRUGS (1)
  1. COPAXONE [Suspect]
     Dates: start: 2009, end: 2011

REACTIONS (3)
  - Head injury [Unknown]
  - Muscle spasticity [Not Recovered/Not Resolved]
  - Vision blurred [Not Recovered/Not Resolved]
